FAERS Safety Report 9470119 (Version 1)
Quarter: 2013Q3

REPORT INFORMATION
  Report Type: Spontaneous
  Country: US (occurrence: US)
  Receive Date: 20130822
  Receipt Date: 20130822
  Transmission Date: 20140515
  Serious: No
  Sender: FDA-Public Use
  Company Number: US-ASTRAZENECA-2013SE50416

PATIENT
  Age: 78 Year
  Sex: Female
  Weight: 60.3 kg

DRUGS (3)
  1. ANASTRAZOLE TABLETS 1MG [Suspect]
     Indication: BREAST CANCER
     Route: 048
     Dates: start: 20130513
  2. TAMOXIFEN [Suspect]
     Indication: BREAST CANCER
     Route: 048
     Dates: end: 201305
  3. LEVOTHYROXINE [Concomitant]
     Indication: THYROID DISORDER
     Dosage: 50 MCG DAILY
     Route: 048

REACTIONS (2)
  - Alopecia [Not Recovered/Not Resolved]
  - Thyroid function test abnormal [Unknown]
